FAERS Safety Report 9417508 (Version 1)
Quarter: 2013Q3

REPORT INFORMATION
  Report Type: Spontaneous
  Country: US (occurrence: None)
  Receive Date: 20130722
  Receipt Date: 20130722
  Transmission Date: 20140515
  Serious: No
  Sender: FDA-Public Use
  Company Number: None

PATIENT
  Age: 49 Year
  Sex: Male
  Weight: 92.53 kg

DRUGS (1)
  1. ABILIFY [Suspect]
     Indication: DELUSION
     Dosage: ONCE DAILY
     Route: 048
     Dates: start: 20120628, end: 20130607

REACTIONS (2)
  - Diabetes mellitus [None]
  - Weight increased [None]
